FAERS Safety Report 9216346 (Version 1)
Quarter: 2013Q2

REPORT INFORMATION
  Report Type: Spontaneous
  Country: GB (occurrence: None)
  Receive Date: 20130403
  Receipt Date: 20130403
  Transmission Date: 20140414
  Serious: Yes (Other)
  Sender: FDA-Public Use
  Company Number: E2B_00000691

PATIENT
  Age: 26 Year
  Sex: Female

DRUGS (4)
  1. QUETIAPINE FUMARATE [Suspect]
     Indication: BIPOLAR DISORDER
     Dosage: 100 MG, ORAL
     Route: 048
  2. QUETIAPINE FUMARATE [Suspect]
     Indication: PSYCHOTIC DISORDER
     Dosage: 100 MG, ORAL
     Route: 048
  3. DIVALPROEX SODIUM [Concomitant]
  4. OLANZAPINE [Concomitant]

REACTIONS (6)
  - Intracranial pressure increased [None]
  - Vitreous floaters [None]
  - Oedema [None]
  - Optic neuritis [None]
  - Papilloedema [None]
  - Exposure during pregnancy [None]
